FAERS Safety Report 8366081-8 (Version None)
Quarter: 2012Q2

REPORT INFORMATION
  Report Type: 
  Country: None (occurrence: None)
  Receive Date: 20120517
  Receipt Date: 20120509
  Transmission Date: 20120825
  Serious: Yes (Life-Threatening, Hospitalization)
  Sender: FDA-Public Use
  Company Number: DK-ELI_LILLY_AND_COMPANY-DK201205003532

PATIENT
  Sex: Male
  Weight: 70 kg

DRUGS (1)
  1. OLANZAPINE [Suspect]
     Indication: SCHIZOPHRENIA, PARANOID TYPE
     Dosage: 405 MG, UNK
     Route: 030
     Dates: start: 20090101, end: 20120417

REACTIONS (6)
  - CONVULSION [None]
  - DIZZINESS [None]
  - DYSARTHRIA [None]
  - SEDATION [None]
  - TREMOR [None]
  - PNEUMONIA ASPIRATION [None]
